FAERS Safety Report 19615874 (Version 1)
Quarter: 2021Q3

REPORT INFORMATION
  Report Type: Spontaneous
  Country: NL (occurrence: NL)
  Receive Date: 20210727
  Receipt Date: 20210727
  Transmission Date: 20211014
  Serious: Yes (Other)
  Sender: FDA-Public Use
  Company Number: NL-SA-2021SA245230

PATIENT
  Age: 60 Year
  Sex: Female

DRUGS (6)
  1. NIFEDIPINE. [Concomitant]
     Active Substance: NIFEDIPINE
     Dosage: UNK
  2. OXAZEPAM. [Concomitant]
     Active Substance: OXAZEPAM
     Dosage: UNK UNK, PRN
  3. METOPROLOL. [Concomitant]
     Active Substance: METOPROLOL
     Dosage: UNK UNK, PRN
  4. ZOLPIDEM [Concomitant]
     Active Substance: ZOLPIDEM TARTRATE
     Dosage: UNK UNK, PRN
  5. COAPROVEL [Suspect]
     Active Substance: HYDROCHLOROTHIAZIDE\IRBESARTAN
     Dosage: UNK
  6. ESOMEPRAZOLE. [Concomitant]
     Active Substance: ESOMEPRAZOLE MAGNESIUM
     Dosage: UNK

REACTIONS (16)
  - Vitreous floaters [Unknown]
  - Body temperature decreased [Unknown]
  - Abdominal discomfort [Unknown]
  - Memory impairment [Unknown]
  - Onychoclasis [Unknown]
  - Taste disorder [Unknown]
  - Malaise [Unknown]
  - Dry mouth [Unknown]
  - Eye infection [Unknown]
  - Headache [Unknown]
  - Dry eye [Unknown]
  - Ephelides [Unknown]
  - Liver function test abnormal [Unknown]
  - Dysphonia [Unknown]
  - Tinnitus [Unknown]
  - Pain [Unknown]
